FAERS Safety Report 9303101 (Version 2)
Quarter: 2013Q2

REPORT INFORMATION
  Report Type: Report from Study
  Country: FR (occurrence: FR)
  Receive Date: 20130522
  Receipt Date: 20130611
  Transmission Date: 20140414
  Serious: Yes (Life-Threatening)
  Sender: FDA-Public Use
  Company Number: FR-009507513-1305FRA010735

PATIENT
  Age: 61 Year
  Sex: Male
  Weight: 79 kg

DRUGS (2)
  1. VORINOSTAT [Suspect]
     Indication: MYELODYSPLASTIC SYNDROME
     Dosage: 600 MG, QD
     Route: 048
     Dates: start: 20130425
  2. VIDAZA [Suspect]
     Indication: MYELODYSPLASTIC SYNDROME
     Dosage: UNK
     Route: 058
     Dates: start: 20130423

REACTIONS (1)
  - Respiratory failure [Not Recovered/Not Resolved]
